FAERS Safety Report 8576816-7 (Version None)
Quarter: 2012Q3

REPORT INFORMATION
  Report Type: 
  Country: None (occurrence: None)
  Receive Date: 20120807
  Receipt Date: 20120803
  Transmission Date: 20120928
  Serious: Yes (Hospitalization)
  Sender: FDA-Public Use
  Company Number: US-AMGEN-US303802

PATIENT
  Age: 45 Year
  Sex: Male
  Weight: 94 kg

DRUGS (12)
  1. IBUPROFEN [Concomitant]
     Dosage: 600 MG, UNK
     Route: 048
  2. METOPROLOL TARTRATE [Concomitant]
  3. ACETAMINOPHEN AND HYDROCODONE BITARTRATE [Concomitant]
     Dosage: UNK UNK, Q6H
     Route: 048
  4. FERROUS SULFATE TAB [Concomitant]
     Dosage: 325 MG, TID
     Route: 048
  5. PHOSLO [Concomitant]
     Dosage: UNK UNK, UNK
  6. CINACALCET HYDROCHLORIDE [Suspect]
     Indication: HYPERPARATHYROIDISM SECONDARY
     Dosage: UNK UNK, QD
     Route: 048
     Dates: start: 20070707
  7. RENAGEL [Concomitant]
     Dosage: 1600 MG, TID
     Route: 048
     Dates: end: 20080807
  8. NORTRIPTYLINE HCL [Concomitant]
     Dosage: 150 MG, QD
     Route: 048
  9. ESOMEPRAZOLE MAGNESIUM [Concomitant]
     Dosage: 40 MG, QD
  10. PROCRIT [Concomitant]
     Dosage: 8000 IU, 3 TIMES/WK
     Route: 058
  11. MINOXIDIL [Concomitant]
  12. CALCIUM ACETATE [Concomitant]

REACTIONS (1)
  - ATRIAL FLUTTER [None]
